FAERS Safety Report 5549696-1 (Version None)
Quarter: 2007Q4

REPORT INFORMATION
  Report Type: 
  Country: None (occurrence: None)
  Receive Date: 20071212
  Receipt Date: 20041201
  Transmission Date: 20080405
  Serious: Yes (Other)
  Sender: FDA-Public Use
  Company Number: US-JNJFOC-20071103106

PATIENT
  Age: 29 Year
  Sex: Female
  Weight: 98 kg

DRUGS (1)
  1. HALOPERIDOL [Suspect]
     Indication: BIPOLAR DISORDER
     Route: 048

REACTIONS (1)
  - WEIGHT INCREASED [None]
